FAERS Safety Report 24266716 (Version 2)
Quarter: 2024Q3

REPORT INFORMATION
  Report Type: Spontaneous
  Country: FR (occurrence: FR)
  Receive Date: 20240830
  Receipt Date: 20240915
  Transmission Date: 20241017
  Serious: Yes (Hospitalization, Other)
  Sender: AUROBINDO
  Company Number: FR-AFSSAPS-CN2024000792

PATIENT
  Age: 64 Year
  Sex: Male
  Weight: 86.85 kg

DRUGS (10)
  1. AMOXICILLIN [Suspect]
     Active Substance: AMOXICILLIN
     Indication: Lung disorder
     Dosage: 3 GRAM, ONCE A DAY (1G 3 TIMES A DAY)
     Route: 048
     Dates: start: 20240601, end: 20240609
  2. AMOXICILLIN [Suspect]
     Active Substance: AMOXICILLIN
     Dosage: 3 GRAM, ONCE A DAY (1G 3 TIMES A DAY)
     Route: 048
     Dates: start: 20240618, end: 20240628
  3. ACETAMINOPHEN [Suspect]
     Active Substance: ACETAMINOPHEN
     Indication: Pain
     Dosage: 4 GRAM, ONCE A DAY (MISUSE } 4 GRAMS/DAY)
     Route: 048
     Dates: start: 20240601, end: 20240609
  4. ACETAMINOPHEN [Suspect]
     Active Substance: ACETAMINOPHEN
     Dosage: 4 GRAM, ONCE A DAY (MISUSE } 4 GRAMS/DAY)
     Route: 048
     Dates: start: 20240618, end: 20240628
  5. RAMIPRIL [Concomitant]
     Active Substance: RAMIPRIL
     Indication: Hypertension
     Dosage: 5 MILLIGRAM, ONCE A DAY
     Route: 048
     Dates: start: 2024
  6. ALBUTEROL [Concomitant]
     Active Substance: ALBUTEROL
     Indication: Asthma
     Dosage: 200 MICROGRAM (2 PUFFS AS NEEDED)
     Dates: start: 2024
  7. CROMOLYN SODIUM [Concomitant]
     Active Substance: CROMOLYN SODIUM
     Indication: Conjunctivitis allergic
     Dosage: 6 GTT DROPS, ONCE A DAY (1 DROP 4 TO 6 TIMES A DAY)
     Route: 031
     Dates: start: 2024
  8. DYMISTA [Concomitant]
     Active Substance: AZELASTINE HYDROCHLORIDE\FLUTICASONE PROPIONATE
     Indication: Rhinitis allergic
     Dosage: 2 DOSAGE FORM, (2/DAY IF NECESSARY)
     Dates: start: 2024
  9. PANTOPRAZOLE [Concomitant]
     Active Substance: PANTOPRAZOLE
     Indication: Gastrooesophageal reflux disease
     Dosage: 40 MILLIGRAM, ONCE A DAY
     Route: 048
     Dates: start: 2024
  10. BECLOMETHASONE DIPROPIONATE\FORMOTEROL FUMARATE\GLYCOPYRROLATE [Concomitant]
     Active Substance: BECLOMETHASONE DIPROPIONATE\FORMOTEROL FUMARATE\GLYCOPYRROLATE
     Indication: Asthma
     Dosage: 4 DOSAGE FORM, ONCE A DAY
     Dates: start: 2024

REACTIONS (2)
  - Hepatitis cholestatic [Recovering/Resolving]
  - Liver injury [Recovering/Resolving]

NARRATIVE: CASE EVENT DATE: 20240722
